FAERS Safety Report 10051011 (Version 1)
Quarter: 2014Q1

REPORT INFORMATION
  Report Type: Spontaneous
  Country: HU (occurrence: None)
  Receive Date: 20140328
  Receipt Date: 20140328
  Transmission Date: 20141002
  Serious: Yes (Hospitalization)
  Sender: FDA-Public Use
  Company Number: 2014PL000043

PATIENT
  Age: 21 Year
  Sex: Female

DRUGS (1)
  1. AZATHIOPRINE [Suspect]
     Indication: COLITIS ULCERATIVE

REACTIONS (10)
  - Septic shock [None]
  - Pancytopenia [None]
  - Acute respiratory distress syndrome [None]
  - Cytomegalovirus infection [None]
  - Histiocytosis haematophagic [None]
  - Febrile neutropenia [None]
  - Diarrhoea haemorrhagic [None]
  - Enterococcus test positive [None]
  - Cytomegalovirus infection [None]
  - Neutropenic sepsis [None]
